FAERS Safety Report 8686558 (Version 6)
Quarter: 2014Q2

REPORT INFORMATION
  Report Type: Spontaneous
  Country: US (occurrence: US)
  Receive Date: 20120726
  Receipt Date: 20140423
  Transmission Date: 20141212
  Serious: Yes (Hospitalization, Disabling, Other)
  Sender: FDA-Public Use
  Company Number: US-009507513-1207USA007095

PATIENT
  Sex: Female

DRUGS (3)
  1. FOSAMAX [Suspect]
     Indication: OSTEOPENIA
     Dosage: 70 MG, QW
     Route: 048
     Dates: start: 20021020, end: 20100718
  2. FOSAMAX PLUS D [Suspect]
     Indication: OSTEOPENIA
     Dosage: 70 MG/2800, QW
     Route: 048
     Dates: start: 20021020, end: 20100718
  3. FOSAMAX [Suspect]
     Dosage: UNK
     Route: 048
     Dates: start: 2000, end: 201006

REACTIONS (26)
  - Femur fracture [Unknown]
  - Open reduction of fracture [Unknown]
  - Skeletal injury [Unknown]
  - Anaemia [Unknown]
  - Transfusion [Unknown]
  - Femur fracture [Unknown]
  - Impaired healing [Unknown]
  - Haematoma [Unknown]
  - Hyperlipidaemia [Unknown]
  - Dermatitis [Unknown]
  - Diverticulum [Unknown]
  - Spinal osteoarthritis [Unknown]
  - Intervertebral disc degeneration [Unknown]
  - Osteoporosis [Unknown]
  - Micturition urgency [Unknown]
  - Muscle injury [Unknown]
  - Osteoarthritis [Unknown]
  - Chest pain [Unknown]
  - Scoliosis [Unknown]
  - Hepatic cyst [Unknown]
  - Haemangioma of liver [Unknown]
  - Renal cyst [Unknown]
  - Facet joint syndrome [Unknown]
  - Spondylolisthesis [Unknown]
  - Muscle atrophy [Unknown]
  - Back pain [Unknown]
